FAERS Safety Report 8459142-6 (Version None)
Quarter: 2012Q2

REPORT INFORMATION
  Report Type: 
  Country: None (occurrence: None)
  Receive Date: 20120622
  Receipt Date: 20120620
  Transmission Date: 20120825
  Serious: Yes (Death, Hospitalization)
  Sender: FDA-Public Use
  Company Number: CA-B.I. PHARMACEUTICALS,INC./RIDGEFIELD-2012-CN-01121CN

PATIENT
  Sex: Female

DRUGS (5)
  1. ANTIHYPERTENSIVE DRUGS [Concomitant]
     Indication: HYPERTENSION
  2. ARICEPT [Concomitant]
  3. PRADAXA [Suspect]
     Dosage: 220 MG
     Dates: start: 20111001, end: 20111101
  4. PRADAXA [Suspect]
     Dosage: 300 MG
     Dates: start: 20111101
  5. TOLOXIN [Concomitant]

REACTIONS (1)
  - CEREBROVASCULAR ACCIDENT [None]
